FAERS Safety Report 9166523 (Version 1)
Quarter: 2013Q1

REPORT INFORMATION
  Report Type: Spontaneous
  Country: US (occurrence: US)
  Receive Date: 20130315
  Receipt Date: 20130315
  Transmission Date: 20140127
  Serious: No
  Sender: FDA-Public Use
  Company Number: US-009507513-1303USA006412

PATIENT
  Sex: Female
  Weight: 87.53 kg

DRUGS (1)
  1. IMPLANON [Suspect]
     Indication: CONTRACEPTION
     Dosage: UNK
     Route: 059
     Dates: start: 20100820

REACTIONS (3)
  - Limb injury [Unknown]
  - Pain in extremity [Recovered/Resolved]
  - Device kink [Unknown]
